FAERS Safety Report 6693711-9 (Version None)
Quarter: 2010Q2

REPORT INFORMATION
  Report Type: 
  Country: None (occurrence: None)
  Receive Date: 20100421
  Receipt Date: 20100407
  Transmission Date: 20101027
  Serious: Yes (Life-Threatening, Hospitalization)
  Sender: FDA-Public Use
  Company Number: DSA_42928_2010

PATIENT
  Age: 67 Year
  Sex: Male

DRUGS (15)
  1. CARDIZEM [Suspect]
     Indication: HEART RATE INCREASED
     Dosage: (DF  INTRAVENOUS DRIP), (DF ORAL)
     Route: 041
     Dates: start: 20090101, end: 20090101
  2. CARDIZEM [Suspect]
     Indication: HEART RATE INCREASED
     Dosage: (DF  INTRAVENOUS DRIP), (DF ORAL)
     Route: 041
     Dates: start: 20090101, end: 20090101
  3. BUPROPION HCL [Suspect]
     Indication: DRUG USE FOR UNKNOWN INDICATION
     Dosage: (DF), (150 MG QD ORAL), (150 MG BID ORAL)
     Route: 048
     Dates: start: 20090101, end: 20090101
  4. BUPROPION HCL [Suspect]
     Indication: DRUG USE FOR UNKNOWN INDICATION
     Dosage: (DF), (150 MG QD ORAL), (150 MG BID ORAL)
     Route: 048
     Dates: start: 20090101, end: 20090101
  5. PLAVIX [Suspect]
     Indication: CORONARY ARTERIAL STENT INSERTION
  6. PLAVIX [Suspect]
     Indication: CORONARY ARTERY DISEASE
  7. ANTI-SMOKING AGENTS [Suspect]
     Indication: SMOKING CESSATION THERAPY
     Dosage: (0.5 MG QD ORAL)
     Route: 048
     Dates: start: 20090104, end: 20090108
  8. COUMADIN [Suspect]
     Indication: ATRIAL FIBRILLATION
     Dosage: (DF ORAL)
     Route: 048
  9. LIPITOR [Concomitant]
  10. ASPIRIN [Concomitant]
  11. SIMVASTATIN [Concomitant]
  12. METOPROLOL TARTRATE [Concomitant]
  13. .. [Concomitant]
  14. DIGOXIN [Concomitant]
  15. ANTIBIOTICS [Concomitant]

REACTIONS (18)
  - AGITATION [None]
  - ARRHYTHMIA [None]
  - ATRIAL FIBRILLATION [None]
  - CHEST DISCOMFORT [None]
  - CHRONIC OBSTRUCTIVE PULMONARY DISEASE [None]
  - COUGH [None]
  - DYSPNOEA [None]
  - HAEMATOMA [None]
  - HEART RATE INCREASED [None]
  - HYPOTENSION [None]
  - HYPOTHYROIDISM [None]
  - INTRACRANIAL ANEURYSM [None]
  - ORTHOPNOEA [None]
  - PALPITATIONS [None]
  - PLEURAL EFFUSION [None]
  - PNEUMONIA [None]
  - POOR QUALITY SLEEP [None]
  - RALES [None]
